FAERS Safety Report 20015456 (Version 1)
Quarter: 2021Q4

REPORT INFORMATION
  Report Type: Spontaneous
  Country: US (occurrence: None)
  Receive Date: 20211031
  Receipt Date: 20211031
  Transmission Date: 20220303
  Serious: Yes (Life-Threatening, Other)
  Sender: FDA-Public Use
  Company Number: None

PATIENT
  Age: 39 Year
  Sex: Female
  Weight: 94.95 kg

DRUGS (9)
  1. REGEN-COV [Suspect]
     Active Substance: CASIRIVIMAB\IMDEVIMAB
     Indication: COVID-19
     Route: 042
     Dates: start: 20211029, end: 20211029
  2. VALSARTAN [Concomitant]
     Active Substance: VALSARTAN
  3. METOPROLOL [Concomitant]
     Active Substance: METOPROLOL
  4. ZYRTEC [Concomitant]
     Active Substance: CETIRIZINE HYDROCHLORIDE
  5. OMEPRAZOLE [Concomitant]
     Active Substance: OMEPRAZOLE
  6. VITAMIN D [Concomitant]
     Active Substance: VITAMIN D NOS
  7. BACTRIM [Concomitant]
     Active Substance: SULFAMETHOXAZOLE\TRIMETHOPRIM
  8. VITAMIN B [Concomitant]
     Active Substance: VITAMIN B
  9. TYLENOL [Concomitant]
     Active Substance: ACETAMINOPHEN

REACTIONS (10)
  - Infusion related reaction [None]
  - Cough [None]
  - Chest discomfort [None]
  - Retching [None]
  - Vomiting [None]
  - Feeling hot [None]
  - Hypersensitivity [None]
  - Back pain [None]
  - Adnexa uteri pain [None]
  - Menstrual disorder [None]

NARRATIVE: CASE EVENT DATE: 20211029
